FAERS Safety Report 7890374-1 (Version None)
Quarter: 2011Q4

REPORT INFORMATION
  Report Type: 
  Country: None (occurrence: None)
  Receive Date: 20111103
  Receipt Date: 20110809
  Transmission Date: 20120403
  Serious: No
  Sender: FDA-Public Use
  Company Number: US-AMGEN-USASP2011040332

PATIENT
  Sex: Female

DRUGS (6)
  1. FOLIC ACID [Concomitant]
  2. OMEPRAZOLE [Concomitant]
  3. ENBREL [Suspect]
     Indication: RHEUMATOID ARTHRITIS
     Dosage: 50 MG, UNK
     Dates: start: 20100301
  4. METHOTREXATE [Concomitant]
  5. XENICAL [Concomitant]
  6. NAPROSYN [Concomitant]

REACTIONS (1)
  - CONTUSION [None]
